FAERS Safety Report 16724174 (Version 1)
Quarter: 2019Q3

REPORT INFORMATION
  Report Type: Spontaneous
  Country: US (occurrence: US)
  Receive Date: 20190703
  Receipt Date: 20190703
  Transmission Date: 20191005
  Serious: No
  Sender: FDA-Public Use
  Company Number: None

PATIENT
  Age: 66 Year
  Sex: Male

DRUGS (1)
  1. ZOCOR [Suspect]
     Active Substance: SIMVASTATIN
     Dates: start: 201905, end: 201906

REACTIONS (2)
  - Muscle rupture [None]
  - Muscle spasms [None]

NARRATIVE: CASE EVENT DATE: 20190622
